FAERS Safety Report 9400063 (Version 1)
Quarter: 2013Q3

REPORT INFORMATION
  Report Type: Spontaneous
  Country: US (occurrence: US)
  Receive Date: 20130715
  Receipt Date: 20130715
  Transmission Date: 20140515
  Serious: Yes (Other)
  Sender: FDA-Public Use
  Company Number: US-TEVA-413034USA

PATIENT
  Age: 4 Decade
  Sex: Female

DRUGS (1)
  1. SYNRIBO [Suspect]
     Dosage: 2.5 MG/M2 DAILY;
     Dates: start: 2013

REACTIONS (1)
  - Pancytopenia [Unknown]
